FAERS Safety Report 6505887-4 (Version None)
Quarter: 2009Q4

REPORT INFORMATION
  Report Type: 
  Country: None (occurrence: None)
  Receive Date: 20091218
  Receipt Date: 20091216
  Transmission Date: 20100525
  Serious: Yes (Death, Hospitalization)
  Sender: FDA-Public Use
  Company Number: SE-ROCHE-674695

PATIENT

DRUGS (1)
  1. AVASTIN [Suspect]
     Indication: GLIOMA
     Route: 065

REACTIONS (2)
  - GASTROINTESTINAL PERFORATION [None]
  - MALIGNANT NEOPLASM PROGRESSION [None]
